FAERS Safety Report 11072666 (Version 25)
Quarter: 2018Q2

REPORT INFORMATION
  Report Type: Report from Study
  Country: CA (occurrence: CA)
  Receive Date: 20150428
  Receipt Date: 20180629
  Transmission Date: 20180711
  Serious: Yes (Hospitalization, Other)
  Sender: FDA-Public Use
  Company Number: PHHY2012CA018523

PATIENT
  Age: 42 Year
  Sex: Male

DRUGS (6)
  1. DILANTIN [Concomitant]
     Active Substance: PHENYTOIN
     Indication: PRODUCT USED FOR UNKNOWN INDICATION
     Dosage: 100 MG, TID
     Route: 048
  2. SANDOSTATIN LAR DEPOT [Suspect]
     Active Substance: OCTREOTIDE ACETATE
     Indication: ACROMEGALY
     Dosage: 30 MG, QMO (EVERY 4 WEEKS)
     Route: 030
     Dates: start: 20080425
  3. HYDROCHLOROTHIAZIDE,VALSARTAN [Suspect]
     Active Substance: HYDROCHLOROTHIAZIDE\VALSARTAN
     Indication: HYPERTENSION
     Dosage: 1 DF, QD
     Route: 048
     Dates: start: 2015
  4. SOMAVERT [Concomitant]
     Active Substance: PEGVISOMANT
     Indication: PRODUCT USED FOR UNKNOWN INDICATION
     Dosage: UNK, Q3W
     Route: 058
  5. CEFTRIAXONE. [Concomitant]
     Active Substance: CEFTRIAXONE
     Indication: PRODUCT USED FOR UNKNOWN INDICATION
     Dosage: 4 G, QD (4 GM IN 140 ML NS VIA PUMP)
     Route: 065
     Dates: start: 20161028
  6. HYDROCHLOROTHIAZIDE,VALSARTAN [Suspect]
     Active Substance: HYDROCHLOROTHIAZIDE\VALSARTAN
     Dosage: 80/12.5 MG, UNK
     Route: 048
     Dates: start: 20151110

REACTIONS (33)
  - Abscess [Unknown]
  - Vitreous floaters [Unknown]
  - Laziness [Unknown]
  - Scab [Recovering/Resolving]
  - Musculoskeletal pain [Recovering/Resolving]
  - Dizziness [Unknown]
  - Tooth abscess [Unknown]
  - Body temperature decreased [Unknown]
  - Fatigue [Unknown]
  - Seizure [Recovered/Resolved]
  - Neoplasm [Unknown]
  - Acoustic neuroma [Not Recovered/Not Resolved]
  - Arthritis [Unknown]
  - Sinusitis [Unknown]
  - Muscular weakness [Unknown]
  - Fibrous dysplasia of bone [Not Recovered/Not Resolved]
  - Night sweats [Unknown]
  - Headache [Recovered/Resolved]
  - Rhinorrhoea [Unknown]
  - Flatulence [Unknown]
  - Albright^s disease [Not Recovered/Not Resolved]
  - Nasopharyngitis [Unknown]
  - Visual impairment [Recovered/Resolved]
  - Hypotension [Recovered/Resolved]
  - Pain in extremity [Recovering/Resolving]
  - Arthralgia [Recovering/Resolving]
  - Vision blurred [Recovering/Resolving]
  - Encephalitis [Unknown]
  - Back pain [Unknown]
  - Blood pressure increased [Unknown]
  - Blood pressure diastolic increased [Unknown]
  - Heart rate increased [Unknown]
  - Inappropriate schedule of drug administration [Unknown]

NARRATIVE: CASE EVENT DATE: 2015
